FAERS Safety Report 8552776-X (Version None)
Quarter: 2012Q3

REPORT INFORMATION
  Report Type: 
  Country: None (occurrence: None)
  Receive Date: 20120731
  Receipt Date: 20120725
  Transmission Date: 20120928
  Serious: Yes (Other)
  Sender: FDA-Public Use
  Company Number: PHHY2012JP065065

PATIENT
  Age: 63 Year
  Sex: Male

DRUGS (4)
  1. PERMAX [Concomitant]
     Indication: PARKINSON'S DISEASE
     Route: 048
     Dates: end: 20120723
  2. COMTAN [Suspect]
     Dosage: 500, 5 TABLET DAILY
     Route: 048
     Dates: start: 20120724
  3. COMTAN [Suspect]
     Indication: PARKINSON'S DISEASE
     Dosage: UNK
     Route: 048
     Dates: start: 20110401, end: 20120723
  4. MADOPAR [Concomitant]
     Indication: PARKINSON'S DISEASE
     Route: 048

REACTIONS (3)
  - PULMONARY TUBERCULOSIS [None]
  - RASH [None]
  - CONCOMITANT DISEASE AGGRAVATED [None]
